FAERS Safety Report 7109223-4 (Version None)
Quarter: 2010Q4

REPORT INFORMATION
  Report Type: 
  Country: None (occurrence: None)
  Receive Date: 20101117
  Receipt Date: 20101105
  Transmission Date: 20110411
  Serious: Yes (Hospitalization)
  Sender: FDA-Public Use
  Company Number: BR-ELI_LILLY_AND_COMPANY-BR201011002006

PATIENT
  Sex: Male
  Weight: 49 kg

DRUGS (4)
  1. FORTEO [Suspect]
     Indication: OSTEOPOROSIS
     Dosage: 20 UG, DAILY (1/D)
     Route: 058
     Dates: start: 20100201
  2. ALENIA [Concomitant]
     Indication: LUNG DISORDER
     Dosage: UNK, 2/D
     Route: 055
     Dates: start: 20080101
  3. ACTONEL [Concomitant]
     Indication: OSTEOPOROSIS
     Dosage: 35 MG, WEEKLY (1/W)
     Route: 048
     Dates: start: 20080101
  4. ASPIRIN [Concomitant]
     Indication: BLOOD DISORDER
     Dosage: UNK, DAILY (1/D)
     Route: 048

REACTIONS (2)
  - PNEUMONIA [None]
  - URINARY TRACT INFECTION [None]
